FAERS Safety Report 24244540 (Version 2)
Quarter: 2025Q4

REPORT INFORMATION
  Report Type: Spontaneous
  Country: EU (occurrence: EU)
  Receive Date: 20240823
  Receipt Date: 20251212
  Transmission Date: 20260119
  Serious: Yes (Other)
  Sender: MYLAN
  Company Number: EU-MYLANLABS-2024M1078246

PATIENT
  Age: 60 Year
  Sex: Male

DRUGS (60)
  1. ETOPOSIDE [Suspect]
     Active Substance: ETOPOSIDE
     Indication: Cutaneous T-cell lymphoma
     Dosage: UNK
  2. ETOPOSIDE [Suspect]
     Active Substance: ETOPOSIDE
     Dosage: UNK
     Route: 065
  3. ETOPOSIDE [Suspect]
     Active Substance: ETOPOSIDE
     Dosage: UNK
     Route: 065
  4. ETOPOSIDE [Suspect]
     Active Substance: ETOPOSIDE
     Dosage: UNK
  5. METHOTREXATE [Suspect]
     Active Substance: METHOTREXATE
     Indication: Prophylaxis against graft versus host disease
     Dosage: UNK
  6. METHOTREXATE [Suspect]
     Active Substance: METHOTREXATE
     Dosage: UNK
     Route: 065
  7. METHOTREXATE [Suspect]
     Active Substance: METHOTREXATE
     Dosage: UNK
     Route: 065
  8. METHOTREXATE [Suspect]
     Active Substance: METHOTREXATE
     Dosage: UNK
  9. CLOBETASOL [Suspect]
     Active Substance: CLOBETASOL
     Indication: Cutaneous T-cell lymphoma
     Dosage: UNK
  10. CLOBETASOL [Suspect]
     Active Substance: CLOBETASOL
     Dosage: UNK
     Route: 065
  11. CLOBETASOL [Suspect]
     Active Substance: CLOBETASOL
     Dosage: UNK
     Route: 065
  12. CLOBETASOL [Suspect]
     Active Substance: CLOBETASOL
     Dosage: UNK
  13. ACITRETIN [Suspect]
     Active Substance: ACITRETIN
     Indication: Cutaneous T-cell lymphoma
     Dosage: UNK
  14. ACITRETIN [Suspect]
     Active Substance: ACITRETIN
     Dosage: UNK
     Route: 065
  15. ACITRETIN [Suspect]
     Active Substance: ACITRETIN
     Dosage: UNK
     Route: 065
  16. ACITRETIN [Suspect]
     Active Substance: ACITRETIN
     Dosage: UNK
  17. BEXAROTENE [Suspect]
     Active Substance: BEXAROTENE
     Indication: Cutaneous T-cell lymphoma
     Dosage: UNK
  18. BEXAROTENE [Suspect]
     Active Substance: BEXAROTENE
     Dosage: UNK
     Route: 065
  19. BEXAROTENE [Suspect]
     Active Substance: BEXAROTENE
     Dosage: UNK
     Route: 065
  20. BEXAROTENE [Suspect]
     Active Substance: BEXAROTENE
     Dosage: UNK
  21. DOXORUBICIN [Suspect]
     Active Substance: DOXORUBICIN
     Indication: Cutaneous T-cell lymphoma
     Dosage: UNK, LIPOSOMAL
  22. DOXORUBICIN [Suspect]
     Active Substance: DOXORUBICIN
     Dosage: UNK, LIPOSOMAL
     Route: 065
  23. DOXORUBICIN [Suspect]
     Active Substance: DOXORUBICIN
     Dosage: UNK, LIPOSOMAL
     Route: 065
  24. DOXORUBICIN [Suspect]
     Active Substance: DOXORUBICIN
     Dosage: UNK, LIPOSOMAL
  25. ROMIDEPSIN [Suspect]
     Active Substance: ROMIDEPSIN
     Indication: Cutaneous T-cell lymphoma
     Dosage: UNK
  26. ROMIDEPSIN [Suspect]
     Active Substance: ROMIDEPSIN
     Dosage: UNK
     Route: 065
  27. ROMIDEPSIN [Suspect]
     Active Substance: ROMIDEPSIN
     Dosage: UNK
     Route: 065
  28. ROMIDEPSIN [Suspect]
     Active Substance: ROMIDEPSIN
     Dosage: UNK
  29. IFOSFAMIDE [Suspect]
     Active Substance: IFOSFAMIDE
     Indication: Cutaneous T-cell lymphoma
     Dosage: UNK
  30. IFOSFAMIDE [Suspect]
     Active Substance: IFOSFAMIDE
     Dosage: UNK
     Route: 065
  31. IFOSFAMIDE [Suspect]
     Active Substance: IFOSFAMIDE
     Dosage: UNK
     Route: 065
  32. IFOSFAMIDE [Suspect]
     Active Substance: IFOSFAMIDE
     Dosage: UNK
  33. CYCLOSPORINE [Suspect]
     Active Substance: CYCLOSPORINE
     Indication: Prophylaxis against graft versus host disease
     Dosage: UNK
  34. CYCLOSPORINE [Suspect]
     Active Substance: CYCLOSPORINE
     Dosage: UNK
     Route: 065
  35. CYCLOSPORINE [Suspect]
     Active Substance: CYCLOSPORINE
     Dosage: UNK
     Route: 065
  36. CYCLOSPORINE [Suspect]
     Active Substance: CYCLOSPORINE
     Dosage: UNK
  37. RUXOLITINIB [Concomitant]
     Active Substance: RUXOLITINIB
     Indication: Chronic graft versus host disease
     Dosage: 20 MILLIGRAM, QD
  38. RUXOLITINIB [Concomitant]
     Active Substance: RUXOLITINIB
     Dosage: 20 MILLIGRAM, QD
     Route: 065
  39. RUXOLITINIB [Concomitant]
     Active Substance: RUXOLITINIB
     Dosage: 20 MILLIGRAM, QD
     Route: 065
  40. RUXOLITINIB [Concomitant]
     Active Substance: RUXOLITINIB
     Dosage: 20 MILLIGRAM, QD
  41. PREDNISONE [Concomitant]
     Active Substance: PREDNISONE
     Indication: Chronic graft versus host disease
     Dosage: UNK
  42. PREDNISONE [Concomitant]
     Active Substance: PREDNISONE
     Dosage: UNK
     Route: 065
  43. PREDNISONE [Concomitant]
     Active Substance: PREDNISONE
     Dosage: UNK
     Route: 065
  44. PREDNISONE [Concomitant]
     Active Substance: PREDNISONE
     Dosage: UNK
  45. BRENTUXIMAB VEDOTIN [Concomitant]
     Active Substance: BRENTUXIMAB VEDOTIN
     Indication: Cutaneous T-cell lymphoma
     Dosage: UNK
  46. BRENTUXIMAB VEDOTIN [Concomitant]
     Active Substance: BRENTUXIMAB VEDOTIN
     Dosage: UNK
     Route: 065
  47. BRENTUXIMAB VEDOTIN [Concomitant]
     Active Substance: BRENTUXIMAB VEDOTIN
     Dosage: UNK
     Route: 065
  48. BRENTUXIMAB VEDOTIN [Concomitant]
     Active Substance: BRENTUXIMAB VEDOTIN
     Dosage: UNK
  49. NIVOLUMAB [Concomitant]
     Active Substance: NIVOLUMAB
     Indication: Cutaneous T-cell lymphoma
     Dosage: UNK
  50. NIVOLUMAB [Concomitant]
     Active Substance: NIVOLUMAB
     Dosage: UNK
     Route: 065
  51. NIVOLUMAB [Concomitant]
     Active Substance: NIVOLUMAB
     Dosage: UNK
     Route: 065
  52. NIVOLUMAB [Concomitant]
     Active Substance: NIVOLUMAB
     Dosage: UNK
  53. BENDAMUSTINE [Concomitant]
     Active Substance: BENDAMUSTINE
     Indication: Cutaneous T-cell lymphoma
     Dosage: UNK
  54. BENDAMUSTINE [Concomitant]
     Active Substance: BENDAMUSTINE
     Dosage: UNK
     Route: 065
  55. BENDAMUSTINE [Concomitant]
     Active Substance: BENDAMUSTINE
     Dosage: UNK
     Route: 065
  56. BENDAMUSTINE [Concomitant]
     Active Substance: BENDAMUSTINE
     Dosage: UNK
  57. Immunoglobulin [Concomitant]
     Indication: Chronic graft versus host disease
     Dosage: UNK
  58. Immunoglobulin [Concomitant]
     Dosage: UNK
     Route: 042
  59. Immunoglobulin [Concomitant]
     Dosage: UNK
     Route: 042
  60. Immunoglobulin [Concomitant]
     Dosage: UNK

REACTIONS (1)
  - Drug ineffective [Unknown]
